FAERS Safety Report 5007306-6 (Version None)
Quarter: 2006Q2

REPORT INFORMATION
  Report Type: 
  Country: None (occurrence: None)
  Receive Date: 20060519
  Receipt Date: 20060519
  Transmission Date: 20061013
  Serious: Yes (Life-Threatening, Hospitalization, Disabling, Other)
  Sender: FDA-Public Use
  Company Number: None

PATIENT
  Age: 6 Year
  Sex: Male
  Weight: 19.0511 kg

DRUGS (1)
  1. FLOVENT HFA [Suspect]
     Indication: RESPIRATORY DISORDER
     Dosage: 110 MCG 2 PUFFS 2X DAY INHALE
     Route: 055
     Dates: start: 20050601, end: 20050701

REACTIONS (5)
  - ADVERSE EVENT [None]
  - DRUG DISPENSING ERROR [None]
  - HYPERTONIA [None]
  - ILL-DEFINED DISORDER [None]
  - INCORRECT DOSE ADMINISTERED [None]
